FAERS Safety Report 12396550 (Version 1)
Quarter: 2016Q2

REPORT INFORMATION
  Report Type: Spontaneous
  Country: US (occurrence: None)
  Receive Date: 20160523
  Receipt Date: 20160523
  Transmission Date: 20160815
  Serious: Yes (Hospitalization)
  Sender: FDA-Public Use
  Company Number: None

PATIENT
  Age: 16 Year
  Sex: Female

DRUGS (20)
  1. PROAIR HFA [Concomitant]
     Active Substance: ALBUTEROL SULFATE
  2. TOBI PODHALER [Suspect]
     Active Substance: TOBRAMYCIN
     Indication: CYSTIC FIBROSIS
     Route: 055
     Dates: start: 20151231
  3. REPLESTA [Concomitant]
  4. HUMULIN NOS [Concomitant]
     Active Substance: INSULIN HUMAN
  5. RIFAMPIN. [Concomitant]
     Active Substance: RIFAMPIN
  6. PULMOZYME [Concomitant]
     Active Substance: DORNASE ALFA
  7. RANITIDINE. [Concomitant]
     Active Substance: RANITIDINE
  8. LANTUS [Concomitant]
     Active Substance: INSULIN GLARGINE
  9. AZITHROMYCIN ANHYDROUS. [Concomitant]
     Active Substance: AZITHROMYCIN ANHYDROUS
  10. CREON [Concomitant]
     Active Substance: PANCRELIPASE AMYLASE\PANCRELIPASE LIPASE\PANCRELIPASE PROTEASE
  11. ETHAMBUTOL [Concomitant]
     Active Substance: ETHAMBUTOL HYDROCHLORIDE
  12. ORKAMBI [Suspect]
     Active Substance: IVACAFTOR\LUMACAFTOR
     Dosage: 400-250MG BID PO
     Route: 048
     Dates: start: 20151123
  13. AMBISOME [Concomitant]
     Active Substance: AMPHOTERICIN B
  14. BOOST [Concomitant]
     Active Substance: DIETARY SUPPLEMENT
  15. SOD CHL [Concomitant]
  16. NOXAFIL [Concomitant]
     Active Substance: POSACONAZOLE
  17. MIRALAX [Concomitant]
     Active Substance: POLYETHYLENE GLYCOL 3350
  18. AMIKACIN [Concomitant]
     Active Substance: AMIKACIN
  19. DULERA [Concomitant]
     Active Substance: FORMOTEROL FUMARATE DIHYDRATE\MOMETASONE FUROATE
  20. LANSOPRAZOLE. [Concomitant]
     Active Substance: LANSOPRAZOLE

REACTIONS (3)
  - Lung infection [None]
  - Nephrolithiasis [None]
  - Gastrointestinal obstruction [None]

NARRATIVE: CASE EVENT DATE: 20160520
